FAERS Safety Report 5784768-8 (Version None)
Quarter: 2008Q2

REPORT INFORMATION
  Report Type: 
  Country: None (occurrence: None)
  Receive Date: 20080620
  Receipt Date: 20080620
  Transmission Date: 20081010
  Serious: No
  Sender: FDA-Public Use
  Company Number: None

PATIENT

DRUGS (1)
  1. AMBIEN [Suspect]
     Indication: INSOMNIA
     Dosage: 5 MG QHS AS NEEDED PO
     Route: 048
     Dates: start: 20080512, end: 20080512

REACTIONS (6)
  - AGITATION [None]
  - AMNESIA [None]
  - ANGER [None]
  - CONFUSIONAL STATE [None]
  - REFUSAL OF TREATMENT BY PATIENT [None]
  - SCREAMING [None]
